FAERS Safety Report 18447606 (Version 2)
Quarter: 2020Q4

REPORT INFORMATION
  Report Type: Spontaneous
  Country: IN (occurrence: IN)
  Receive Date: 20201030
  Receipt Date: 20201030
  Transmission Date: 20210114
  Serious: Yes (Hospitalization, Other)
  Sender: FDA-Public Use
  Company Number: IN-MACLEODS PHARMACEUTICALS US LTD-MAC2020028811

PATIENT

DRUGS (6)
  1. PHENYLEPHRINE [Concomitant]
     Active Substance: PHENYLEPHRINE HYDROCHLORIDE
     Indication: PRODUCT USED FOR UNKNOWN INDICATION
     Dosage: UNK
     Route: 047
  2. HYALURONIDASE [Concomitant]
     Active Substance: HYALURONIDASE
     Indication: PRODUCT USED FOR UNKNOWN INDICATION
     Dosage: 500 INTERNATIONAL UNIT
     Route: 065
  3. LIDOCAINE. [Suspect]
     Active Substance: LIDOCAINE
     Indication: ANAESTHESIA
     Dosage: 4 MILLILITER, LIGNOCAINE 2% WITH ADRENALINE 1 IN 200,000
     Route: 061
  4. LIDOCAINE. [Suspect]
     Active Substance: LIDOCAINE
     Dosage: INJECTION OF LIGNOCAINE
     Route: 058
  5. EPINEPHRINE. [Concomitant]
     Active Substance: EPINEPHRINE
     Indication: PRODUCT USED FOR UNKNOWN INDICATION
     Dosage: ADRENALINE, LIGNOCAINE 2% WITH ADRENALINE 1 IN 200,000
     Route: 065
  6. TROPICAMIDE. [Concomitant]
     Active Substance: TROPICAMIDE
     Indication: PRODUCT USED FOR UNKNOWN INDICATION
     Dosage: UNK
     Route: 047

REACTIONS (13)
  - Sluggishness [Recovering/Resolving]
  - Eye pain [Recovering/Resolving]
  - Mydriasis [Recovering/Resolving]
  - Pupillary reflex impaired [Unknown]
  - Eye swelling [Recovering/Resolving]
  - Ocular hyperaemia [Recovering/Resolving]
  - Eye movement disorder [Recovering/Resolving]
  - Intraocular pressure increased [Recovering/Resolving]
  - Periorbital swelling [Recovering/Resolving]
  - Eyelid oedema [Recovering/Resolving]
  - Exophthalmos [Recovered/Resolved]
  - Injection site erythema [Recovered/Resolved]
  - Drug hypersensitivity [Recovering/Resolving]
